FAERS Safety Report 9095895 (Version 3)
Quarter: 2013Q2

REPORT INFORMATION
  Report Type: Spontaneous
  Country: US (occurrence: US)
  Receive Date: 20130220
  Receipt Date: 20130409
  Transmission Date: 20140414
  Serious: Yes (Death, Hospitalization)
  Sender: FDA-Public Use
  Company Number: US-ELI_LILLY_AND_COMPANY-US201302004043

PATIENT
  Sex: Female
  Weight: 47.4 kg

DRUGS (7)
  1. FORTEO [Suspect]
     Indication: OSTEOPOROSIS
     Dosage: UNK, QD
     Route: 058
     Dates: start: 201107
  2. PEPCID [Concomitant]
     Dosage: 20 DF, QD
  3. FISH OIL [Concomitant]
     Dosage: UNK
  4. ALLEGRA [Concomitant]
     Dosage: UNK
  5. IMODIUM [Concomitant]
     Dosage: UNK
  6. WARFARIN [Concomitant]
     Dosage: UNK
  7. DIPENTUM [Concomitant]
     Dosage: UNK

REACTIONS (3)
  - Death [Fatal]
  - Atrial fibrillation [Unknown]
  - International normalised ratio abnormal [Unknown]
